FAERS Safety Report 14614969 (Version 1)
Quarter: 2018Q1

REPORT INFORMATION
  Report Type: Spontaneous
  Country: US (occurrence: US)
  Receive Date: 20180308
  Receipt Date: 20180308
  Transmission Date: 20180509
  Serious: Yes (Hospitalization)
  Sender: FDA-Public Use
  Company Number: US-PFIZER INC-2018093246

PATIENT
  Age: 53 Year
  Sex: Female
  Weight: 85.73 kg

DRUGS (12)
  1. TOPIRAMATE. [Concomitant]
     Active Substance: TOPIRAMATE
     Indication: MIGRAINE
     Dosage: 50MG TWICE A DAY, 2 IN THE MORNING AND 2 AT NIGHT
  2. POTASSIUM [Concomitant]
     Active Substance: POTASSIUM
     Dosage: 2 A DAY; 10MEQ CAPSULES
  3. ECHINACEA [Concomitant]
     Active Substance: ECHINACEA, UNSPECIFIED
     Dosage: UNK
  4. CYCLOBENZAPRINE. [Concomitant]
     Active Substance: CYCLOBENZAPRINE
     Dosage: 10MG TABLETS; 1 BY MOUTH THREE TIMES A DAY
     Route: 048
  5. CETIRIZINE [Concomitant]
     Active Substance: CETIRIZINE HYDROCHLORIDE
     Dosage: 1 DF, DAILY
  6. LYRICA [Suspect]
     Active Substance: PREGABALIN
     Indication: NEURALGIA
     Dosage: 75MG; TWICE OR THREE TIMES A DAY
     Dates: end: 201712
  7. LITHIUM. [Concomitant]
     Active Substance: LITHIUM
     Dosage: 300MG; 2 TABLETS ONCE A DAY
  8. SIMVASTATIN. [Concomitant]
     Active Substance: SIMVASTATIN
     Dosage: 20MG ONCE AT NIGHT
  9. AMLODIPINE [Concomitant]
     Active Substance: AMLODIPINE BESYLATE
     Dosage: 1 DF, DAILY
  10. ONE-A-DAY [Concomitant]
     Active Substance: VITAMINS
     Dosage: UNK
  11. VITAMIN D [Concomitant]
     Active Substance: CHOLECALCIFEROL
     Dosage: UNK
  12. VITATON [Concomitant]
     Dosage: UNK

REACTIONS (1)
  - Road traffic accident [Unknown]

NARRATIVE: CASE EVENT DATE: 2013
